FAERS Safety Report 5685255-8 (Version None)
Quarter: 2008Q1

REPORT INFORMATION
  Report Type: 
  Country: None (occurrence: None)
  Receive Date: 20080328
  Receipt Date: 20080317
  Transmission Date: 20080703
  Serious: Yes (Hospitalization, Other)
  Sender: FDA-Public Use
  Company Number: AR-PFIZER INC-2008015364

PATIENT
  Sex: Female
  Weight: 56 kg

DRUGS (2)
  1. LYRICA [Suspect]
     Indication: TENSION HEADACHE
     Route: 048
     Dates: start: 20080206, end: 20080211
  2. DIAZEPAM [Concomitant]
     Route: 048

REACTIONS (4)
  - DIPLOPIA [None]
  - EYE DISORDER [None]
  - SINUSITIS [None]
  - TOLOSA-HUNT SYNDROME [None]
